FAERS Safety Report 7547860-3 (Version None)
Quarter: 2011Q2

REPORT INFORMATION
  Report Type: 
  Country: None (occurrence: None)
  Receive Date: 20110615
  Receipt Date: 20110607
  Transmission Date: 20111010
  Serious: No
  Sender: FDA-Public Use
  Company Number: US-BIOGENIDEC-2010BI025535

PATIENT
  Age: 47 Year
  Sex: Female

DRUGS (1)
  1. TYSABRI [Suspect]
     Indication: MULTIPLE SCLEROSIS
     Route: 042
     Dates: start: 20100723

REACTIONS (12)
  - EYE IRRITATION [None]
  - HYPOAESTHESIA FACIAL [None]
  - ABNORMAL DREAMS [None]
  - HEADACHE [None]
  - PARAESTHESIA [None]
  - COORDINATION ABNORMAL [None]
  - HYPOAESTHESIA [None]
  - ANXIETY [None]
  - FRUSTRATION [None]
  - BURNING SENSATION [None]
  - PAIN IN EXTREMITY [None]
  - FATIGUE [None]
